FAERS Safety Report 5022034-9 (Version None)
Quarter: 2006Q2

REPORT INFORMATION
  Report Type: 
  Country: None (occurrence: None)
  Receive Date: 20060609
  Receipt Date: 20060531
  Transmission Date: 20061013
  Serious: Yes (Death)
  Sender: FDA-Public Use
  Company Number: PHBS2006JP08121

PATIENT
  Age: 75 Year
  Sex: Female

DRUGS (1)
  1. METOPIRONE [Suspect]
     Indication: ECTOPIC ACTH SYNDROME
     Dosage: 750 MG/DAY
     Route: 048
     Dates: start: 20040213, end: 20040225

REACTIONS (2)
  - CARCINOID TUMOUR PULMONARY [None]
  - PNEUMOCYSTIS JIROVECI PNEUMONIA [None]
